FAERS Safety Report 6309387-6 (Version None)
Quarter: 2009Q3

REPORT INFORMATION
  Report Type: 
  Country: None (occurrence: None)
  Receive Date: 20090811
  Receipt Date: 20090526
  Transmission Date: 20100115
  Serious: No
  Sender: FDA-Public Use
  Company Number: 1000006460

PATIENT
  Age: 37 Year
  Sex: Female

DRUGS (6)
  1. SAVELLA [Suspect]
     Indication: FIBROMYALGIA
     Dosage: 12.5 MG (12.5 MG,1 IN 1 D),ORAL
     Route: 048
     Dates: start: 20090524, end: 20090524
  2. PANTOPRAZOLE SODIUM [Concomitant]
  3. TESTOSTERONE [Concomitant]
  4. PROGESTERONE [Concomitant]
  5. MULTI-VITAMINS [Concomitant]
  6. . [Concomitant]

REACTIONS (5)
  - CHILLS [None]
  - DISTURBANCE IN ATTENTION [None]
  - DIZZINESS [None]
  - HEADACHE [None]
  - NAUSEA [None]
